FAERS Safety Report 18963212 (Version 5)
Quarter: 2021Q3

REPORT INFORMATION
  Report Type: Report from Study
  Country: BR (occurrence: BR)
  Receive Date: 20210303
  Receipt Date: 20210819
  Transmission Date: 20211014
  Serious: Yes (Life-Threatening, Hospitalization, Other)
  Sender: FDA-Public Use
  Company Number: NVSC2020BR280067

PATIENT
  Sex: Female

DRUGS (3)
  1. AFINITOR [Suspect]
     Active Substance: EVEROLIMUS
     Indication: PRODUCT USED FOR UNKNOWN INDICATION
     Dosage: UNK (STARTED SINCE BEGINNING OF 2018)
     Route: 065
     Dates: start: 2018
  2. RIBOCICLIB. [Concomitant]
     Active Substance: RIBOCICLIB
     Indication: PRODUCT USED FOR UNKNOWN INDICATION
     Dosage: 3 DF
     Route: 065
     Dates: start: 20201218
  3. AROMASIN [Concomitant]
     Active Substance: EXEMESTANE
     Indication: PRODUCT USED FOR UNKNOWN INDICATION
     Dosage: UNK
     Route: 065
     Dates: start: 2018

REACTIONS (11)
  - Pneumonitis [Unknown]
  - Cataract [Unknown]
  - Metastases to bone [Unknown]
  - Eating disorder [Recovered/Resolved]
  - Pain [Unknown]
  - Pneumonia [Recovered/Resolved]
  - Visual impairment [Unknown]
  - Oropharyngeal pain [Recovered/Resolved]
  - Immunodeficiency [Unknown]
  - Wound [Unknown]
  - Pneumonia [Unknown]

NARRATIVE: CASE EVENT DATE: 2018
